FAERS Safety Report 8542591-5 (Version None)
Quarter: 2012Q3

REPORT INFORMATION
  Report Type: 
  Country: None (occurrence: None)
  Receive Date: 20120726
  Receipt Date: 20120719
  Transmission Date: 20120928
  Serious: Yes (Other)
  Sender: FDA-Public Use
  Company Number: US-AMGEN-USASP2011022109

PATIENT
  Age: 72 Year
  Sex: Male
  Weight: 98.594 kg

DRUGS (25)
  1. PLAVIX [Concomitant]
  2. ASPIRIN [Concomitant]
  3. LANTUS [Concomitant]
  4. TRAMADOL HCL [Concomitant]
     Indication: PAIN
     Dosage: 50 MG, UNK
     Route: 048
  5. MULTIVITAMIN                       /00097801/ [Concomitant]
     Route: 048
  6. OXYCODONE                          /00045603/ [Concomitant]
     Indication: PAIN
     Dosage: 10 MG, PRN
     Route: 048
  7. ARANESP [Suspect]
     Indication: ANAEMIA
     Dates: start: 20110401
  8. IVIGLOB-EX [Concomitant]
     Dosage: UNK
     Route: 042
  9. TOPROL-XL [Concomitant]
     Dosage: 50 MG, UNK
     Route: 048
  10. ACYCLOVIR [Concomitant]
     Dosage: 400 MG, QD
     Route: 048
  11. ATIVAN [Concomitant]
     Indication: NAUSEA
     Dosage: 1 MG, PRN
  12. FLEXERIL [Concomitant]
     Indication: MUSCLE SPASMS
     Dosage: 10 MG, UNK
     Route: 048
  13. FLONASE [Concomitant]
     Dosage: 50 MUG, QD
     Route: 055
  14. INSULIN REGULAR HM [Concomitant]
  15. SULFAMETTHOXAZOLE AND TRIMETHOPRIM [Concomitant]
  16. PROTONIX [Concomitant]
     Dosage: 40 MG, QD
     Route: 048
  17. ADVAIR DISKUS 100/50 [Concomitant]
     Dosage: UNK UNK, QD
     Route: 055
  18. CALCIUM [Concomitant]
     Dosage: 500 MG, UNK
     Route: 048
  19. VITAMIN C                          /00008001/ [Concomitant]
     Dosage: 500 MG, BID
     Route: 048
  20. ZOMETA [Concomitant]
     Dosage: UNK
     Route: 042
  21. REVLIMID [Concomitant]
     Dosage: 10 MG, UNK
     Route: 048
  22. ATIVAN [Concomitant]
     Indication: ANXIETY
  23. COMBIVENT [Concomitant]
     Route: 055
  24. DEXAMETHASONE [Concomitant]
     Dosage: 4 MG, UNK
     Route: 048
  25. NITROGLYCERIN [Concomitant]
     Dosage: 0.3 MG, UNK
     Route: 060

REACTIONS (16)
  - MUSCULOSKELETAL PAIN [None]
  - NEUTROPENIA [None]
  - NOCTURIA [None]
  - DISCOMFORT [None]
  - GROIN PAIN [None]
  - NECK PAIN [None]
  - BACK PAIN [None]
  - CHEST PAIN [None]
  - URINARY TRACT INFECTION [None]
  - SPINAL PAIN [None]
  - FATIGUE [None]
  - BONE PAIN [None]
  - ANXIETY [None]
  - THROMBOCYTOPENIA [None]
  - MUSCLE SPASMS [None]
  - ASTHENIA [None]
